FAERS Safety Report 15928006 (Version 2)
Quarter: 2019Q1

REPORT INFORMATION
  Report Type: Spontaneous
  Country: US (occurrence: US)
  Receive Date: 20190206
  Receipt Date: 20190327
  Transmission Date: 20190417
  Serious: Yes (Hospitalization)
  Sender: FDA-Public Use
  Company Number: US-JNJFOC-20190134718

PATIENT
  Sex: Female

DRUGS (18)
  1. AMLODIPINE [Concomitant]
     Active Substance: AMLODIPINE BESYLATE
  2. MYRBETRIQ [Concomitant]
     Active Substance: MIRABEGRON
  3. ANORO ELLIPTA [Concomitant]
     Active Substance: UMECLIDINIUM BROMIDE\VILANTEROL TRIFENATATE
  4. PIOGLITAZONE. [Concomitant]
     Active Substance: PIOGLITAZONE
  5. GLIMEPIRIDE. [Concomitant]
     Active Substance: GLIMEPIRIDE
  6. HYDROCODONE BITARTRATE AND ACETAMINOPHEN [Concomitant]
     Active Substance: ACETAMINOPHEN\HYDROCODONE BITARTRATE
  7. TIZANIDINE. [Concomitant]
     Active Substance: TIZANIDINE
  8. MIRTAZAPINE. [Concomitant]
     Active Substance: MIRTAZAPINE
  9. OMEPRAZOLE. [Concomitant]
     Active Substance: OMEPRAZOLE
  10. TREMFYA [Suspect]
     Active Substance: GUSELKUMAB
     Indication: PSORIATIC ARTHROPATHY
     Route: 058
     Dates: start: 20180911
  11. CLONIDINE. [Concomitant]
     Active Substance: CLONIDINE
  12. CLOBETASOL [Concomitant]
     Active Substance: CLOBETASOL
  13. LOSARTAN. [Concomitant]
     Active Substance: LOSARTAN
  14. SPIRONOLACTONE. [Concomitant]
     Active Substance: SPIRONOLACTONE
  15. DULOXETINE. [Concomitant]
     Active Substance: DULOXETINE
  16. METFORMIN [Concomitant]
     Active Substance: METFORMIN HYDROCHLORIDE
  17. METOPROLOL. [Concomitant]
     Active Substance: METOPROLOL
  18. MIRTAZAPINE. [Concomitant]
     Active Substance: MIRTAZAPINE

REACTIONS (8)
  - Asthenia [Unknown]
  - Blood potassium increased [Unknown]
  - Drug ineffective [Unknown]
  - Atrial fibrillation [Unknown]
  - Bradycardia [Unknown]
  - Heart rate increased [Unknown]
  - Hypotension [Unknown]
  - Psoriasis [Unknown]
